FAERS Safety Report 13610365 (Version 1)
Quarter: 2017Q2

REPORT INFORMATION
  Report Type: Spontaneous
  Country: US (occurrence: US)
  Receive Date: 20170602
  Receipt Date: 20170602
  Transmission Date: 20170830
  Serious: Yes (Other)
  Sender: FDA-Public Use
  Company Number: None

PATIENT
  Age: 38 Year
  Sex: Female
  Weight: 66.6 kg

DRUGS (8)
  1. VITAMIN B12 [Concomitant]
     Active Substance: CYANOCOBALAMIN
  2. CALCIUM [Concomitant]
     Active Substance: CALCIUM
  3. DULOXETINE. [Suspect]
     Active Substance: DULOXETINE
     Indication: COMPLEX REGIONAL PAIN SYNDROME
     Dosage: ?          QUANTITY:1 CAPSULE(S);?
     Route: 048
  4. MAGNESIUM [Concomitant]
     Active Substance: MAGNESIUM
  5. GABAPENTIN. [Concomitant]
     Active Substance: GABAPENTIN
  6. VITAMIN C [Suspect]
     Active Substance: ASCORBIC ACID
  7. OXYCODONE [Concomitant]
     Active Substance: OXYCODONE
  8. VITAMIN [Concomitant]
     Active Substance: VITAMINS

REACTIONS (13)
  - Nausea [None]
  - Vomiting [None]
  - Headache [None]
  - Crying [None]
  - Paraesthesia [None]
  - Arthralgia [None]
  - Myalgia [None]
  - Fatigue [None]
  - Withdrawal syndrome [None]
  - Diarrhoea [None]
  - Anger [None]
  - Depression [None]
  - Suicidal ideation [None]

NARRATIVE: CASE EVENT DATE: 20170516
